FAERS Safety Report 8803353 (Version 1)
Quarter: 2012Q4

REPORT INFORMATION
  Report Type: 
  Country: FR (occurrence: FR)
  Receive Date: 20120924
  Receipt Date: 20120924
  Transmission Date: 20130627
  Serious: Yes (Other)
  Sender: FDA-Public Use
  Company Number: FR-ASTRAZENECA-2012SE71867

PATIENT
  Age: 650 Month
  Sex: Female

DRUGS (3)
  1. ZOMIG ORO [Suspect]
     Indication: MIGRAINE
     Route: 048
     Dates: start: 200906
  2. AVAMYS [Concomitant]
     Dosage: FROM SEVERAL YEARS, AS REQUIRED
     Route: 048
  3. LAROXYL [Concomitant]
     Dosage: FROM SEVERAL YEARS, AT NIGHT

REACTIONS (1)
  - Raynaud^s phenomenon [Unknown]
